FAERS Safety Report 4520733-6 (Version None)
Quarter: 2004Q4

REPORT INFORMATION
  Report Type: 
  Country: None (occurrence: None)
  Receive Date: 20041203
  Receipt Date: 20041104
  Transmission Date: 20050328
  Serious: Yes (Hospitalization)
  Sender: FDA-Public Use
  Company Number: STA-AE-04-MTX-542

PATIENT
  Age: 63 Year
  Sex: Female

DRUGS (13)
  1. RHEUMATREX [Suspect]
     Indication: RHEUMATOID ARTHRITIS
     Dosage: 6 MG PER WEEK, ORAL
     Route: 048
     Dates: start: 20031203
  2. PREDNISOLONE [Suspect]
     Indication: RHEUMATOID ARTHRITIS
     Dosage: 15 MG DAILY, ORAL
     Route: 048
     Dates: start: 20031203
  3. REMICADE [Suspect]
     Indication: RHEUMATOID ARTHRITIS
     Dosage: ONE 3 MG PER/KG DOSE,  INTRAVENOUS DRIP
     Route: 042
     Dates: start: 20040412, end: 20040412
  4. REMICADE [Suspect]
     Indication: RHEUMATOID ARTHRITIS
     Dosage: ONE 3 MG PER/KG DOSE,  INTRAVENOUS DRIP
     Route: 042
     Dates: start: 20040426, end: 20040426
  5. REMICADE [Suspect]
     Indication: RHEUMATOID ARTHRITIS
     Dosage: ONE 3 MG PER/KG DOSE,  INTRAVENOUS DRIP
     Route: 042
     Dates: start: 20040525, end: 20040525
  6. AZULFIDINE [Concomitant]
  7. TETRAMIDE (MIANSERIN HYDROCHLORIDE) [Concomitant]
  8. CYTOTEC [Concomitant]
  9. EURODIN (ESTAZOLAM) [Concomitant]
  10. ROHYPNOL (FLUNITRAZEPAM) [Concomitant]
  11. LANSOPRAZOLE [Concomitant]
  12. GLIMICRON (GLICLAZIDE) [Concomitant]
  13. LOXONIN (LOXOPROFEN SODIUM) [Concomitant]

REACTIONS (4)
  - BRONCHITIS BACTERIAL [None]
  - ESCHERICHIA INFECTION [None]
  - PNEUMONIA [None]
  - PRODUCTIVE COUGH [None]
